FAERS Safety Report 7164205-1 (Version None)
Quarter: 2010Q4

REPORT INFORMATION
  Report Type: 
  Country: None (occurrence: None)
  Receive Date: 20101123
  Receipt Date: 20100824
  Transmission Date: 20110411
  Serious: No
  Sender: FDA-Public Use
  Company Number: 016038

PATIENT
  Sex: Female

DRUGS (1)
  1. CIMZIA [Suspect]
     Indication: CROHN'S DISEASE
     Dosage: 400 MG 1X/28 DAYS, SUBCUTANEOUS
     Route: 058
     Dates: start: 20090218

REACTIONS (2)
  - ABDOMINAL PAIN [None]
  - DECREASED APPETITE [None]
